FAERS Safety Report 9201891 (Version 2)
Quarter: 2014Q1

REPORT INFORMATION
  Report Type: Spontaneous
  Country: US (occurrence: US)
  Receive Date: 20130401
  Receipt Date: 20140120
  Transmission Date: 20141002
  Serious: Yes (Hospitalization, Other)
  Sender: FDA-Public Use
  Company Number: US-BAYER-2013-038340

PATIENT
  Age: 33 Year
  Sex: Female

DRUGS (7)
  1. YAZ [Suspect]
  2. YASMIN [Suspect]
  3. OCELLA [Suspect]
  4. CLARITIN [Concomitant]
  5. VICODIN [Concomitant]
     Indication: PAIN
  6. DONNATAL [Concomitant]
  7. ACIPHEX [Concomitant]

REACTIONS (5)
  - Gallbladder injury [None]
  - Cholecystitis acute [None]
  - Injury [None]
  - Pain [None]
  - Pain [None]
